FAERS Safety Report 18222285 (Version 1)
Quarter: 2020Q3

REPORT INFORMATION
  Report Type: Spontaneous
  Country: CA (occurrence: CA)
  Receive Date: 20200902
  Receipt Date: 20200902
  Transmission Date: 20201103
  Serious: Yes (Hospitalization, Other)
  Sender: FDA-Public Use
  Company Number: CA-ACCORD-198205

PATIENT
  Age: 77 Year
  Sex: Female

DRUGS (48)
  1. CAFFEINE/PARACETAMOL [Suspect]
     Active Substance: ACETAMINOPHEN\CAFFEINE
     Indication: PAIN
     Route: 065
  2. MORPHINE [Suspect]
     Active Substance: MORPHINE
     Indication: PAIN
     Route: 065
  3. QUINAPRIL. [Suspect]
     Active Substance: QUINAPRIL
     Indication: CORONARY ARTERY DISEASE
     Route: 065
  4. PARACETAMOL [Concomitant]
     Active Substance: ACETAMINOPHEN
     Indication: PAIN
     Route: 065
  5. CARBAMAZEPINE. [Suspect]
     Active Substance: CARBAMAZEPINE
     Indication: SEIZURE
     Route: 065
  6. AMLODIPINE [Suspect]
     Active Substance: AMLODIPINE BESYLATE
     Indication: HYPERTENSION
     Route: 065
  7. ACEBUTOLOL [Suspect]
     Active Substance: ACEBUTOLOL
     Indication: HYPERTENSION
     Route: 065
  8. APO?DILTIAZ [Suspect]
     Active Substance: DILTIAZEM HYDROCHLORIDE
     Indication: HYPERTENSION
     Route: 065
  9. DIPYRIDAMOLE. [Suspect]
     Active Substance: DIPYRIDAMOLE
     Indication: CEREBROVASCULAR ACCIDENT
     Route: 065
  10. GLYCERYL TRINITRATE [Suspect]
     Active Substance: NITROGLYCERIN
     Indication: CORONARY ARTERY DISEASE
     Route: 065
  11. LEVOTHYROXINE. [Suspect]
     Active Substance: LEVOTHYROXINE
     Indication: THYROID DISORDER
     Route: 065
  12. OXAZEPAM. [Suspect]
     Active Substance: OXAZEPAM
     Indication: INSOMNIA
     Route: 065
  13. QUINAPRIL. [Suspect]
     Active Substance: QUINAPRIL
     Indication: CORONARY ARTERY DISEASE
     Route: 065
  14. AMITRIPTYLINE [Suspect]
     Active Substance: AMITRIPTYLINE
     Indication: INSOMNIA
     Route: 065
  15. OMEPRAZOLE. [Suspect]
     Active Substance: OMEPRAZOLE
     Indication: DUODENAL ULCER
     Route: 065
  16. APO?AMITRIPTYLINE [Suspect]
     Active Substance: AMITRIPTYLINE HYDROCHLORIDE
     Indication: INSOMNIA
     Route: 065
  17. GLYCERYL TRINITRATE [Suspect]
     Active Substance: NITROGLYCERIN
     Indication: CORONARY ARTERY DISEASE
     Route: 065
  18. LEVOTHYROXINE. [Suspect]
     Active Substance: LEVOTHYROXINE
     Indication: THYROID DISORDER
     Route: 065
  19. MAGNESIUM HYDROXIDE. [Suspect]
     Active Substance: MAGNESIUM HYDROXIDE
     Indication: CONSTIPATION
     Route: 065
  20. ACETYLSALICYLIC ACID/DIPYRIDAMOLE [Concomitant]
     Indication: PRODUCT USED FOR UNKNOWN INDICATION
     Route: 065
  21. ACETYLSALICYLIC ACID [Concomitant]
     Active Substance: ASPIRIN
     Indication: PRODUCT USED FOR UNKNOWN INDICATION
     Route: 065
  22. APO?DILTIAZ [Suspect]
     Active Substance: DILTIAZEM HYDROCHLORIDE
     Indication: HYPERTENSION
     Route: 065
  23. CYCLOBENZAPRINE. [Suspect]
     Active Substance: CYCLOBENZAPRINE
     Indication: PAIN
     Route: 065
  24. TIOTROPIUM [Suspect]
     Active Substance: TIOTROPIUM
     Indication: CHRONIC OBSTRUCTIVE PULMONARY DISEASE
     Route: 065
  25. APO?CYCLOBENZAPRINE [Suspect]
     Active Substance: CYCLOBENZAPRINE
     Indication: FIBROMYALGIA
     Route: 065
  26. CARBAMAZEPINE. [Suspect]
     Active Substance: CARBAMAZEPINE
     Indication: SEIZURE
     Route: 065
  27. LACTULOSE. [Suspect]
     Active Substance: LACTULOSE
     Indication: CONSTIPATION
     Route: 065
  28. DILTIAZEM/DILTIAZEM HYDROCHLORIDE/DILTIAZEM MALATE [Suspect]
     Active Substance: DILTIAZEM
     Indication: HYPERTENSION
     Route: 065
  29. GLYCERYL TRINITRATE [Suspect]
     Active Substance: NITROGLYCERIN
     Indication: CORONARY ARTERY DISEASE
     Route: 061
  30. OXAZEPAM. [Suspect]
     Active Substance: OXAZEPAM
     Indication: INSOMNIA
     Route: 065
  31. GLUCOSAMINE [Suspect]
     Active Substance: GLUCOSAMINE
     Indication: PAIN
     Route: 065
  32. DILTIAZEM/DILTIAZEM HYDROCHLORIDE/DILTIAZEM MALATE [Suspect]
     Active Substance: DILTIAZEM
     Indication: HYPERTENSION
     Route: 065
  33. ROSUVASTATIN. [Suspect]
     Active Substance: ROSUVASTATIN
     Indication: CEREBROVASCULAR ACCIDENT
     Route: 065
  34. APO?OXAZEPAM [Suspect]
     Active Substance: OXAZEPAM
     Indication: INSOMNIA
     Route: 065
  35. CYCLOBENZAPRINE. [Suspect]
     Active Substance: CYCLOBENZAPRINE
     Indication: PAIN
     Route: 065
  36. LEVOFLOXACIN. [Suspect]
     Active Substance: LEVOFLOXACIN
     Indication: URINARY TRACT INFECTION
     Route: 065
  37. SALBUTAMOL [Suspect]
     Active Substance: ALBUTEROL
     Indication: PRODUCT USED FOR UNKNOWN INDICATION
     Route: 065
  38. ACEBUTOLOL [Suspect]
     Active Substance: ACEBUTOLOL
     Indication: HYPERTENSION
     Route: 065
  39. AMITRIPTYLINE [Suspect]
     Active Substance: AMITRIPTYLINE
     Indication: INSOMNIA
     Route: 065
  40. FUROSEMIDE. [Suspect]
     Active Substance: FUROSEMIDE
     Indication: OEDEMA
     Route: 065
  41. APO?CARBAMAZEPINE [Suspect]
     Active Substance: CARBAMAZEPINE
     Indication: PROPHYLAXIS
     Route: 065
  42. DULCOLAX NOS [Suspect]
     Active Substance: BISACODYL OR DOCUSATE SODIUM
     Indication: CONSTIPATION
     Route: 065
  43. GALANTAMINE. [Suspect]
     Active Substance: GALANTAMINE
     Indication: DEMENTIA
     Route: 065
  44. TIOTROPIUM [Suspect]
     Active Substance: TIOTROPIUM
     Indication: CHRONIC OBSTRUCTIVE PULMONARY DISEASE
     Route: 065
  45. VACCINIUM MACROCARPON [Concomitant]
     Active Substance: CRANBERRY
     Indication: PRODUCT USED FOR UNKNOWN INDICATION
     Route: 065
  46. ACEBUTOLOL [Suspect]
     Active Substance: ACEBUTOLOL
     Indication: HYPERTENSION
     Route: 065
  47. GLYCERYL TRINITRATE [Suspect]
     Active Substance: NITROGLYCERIN
     Indication: CORONARY ARTERY DISEASE
     Route: 065
  48. MORPHINE [Suspect]
     Active Substance: MORPHINE
     Indication: PAIN
     Route: 065

REACTIONS (13)
  - Sedation [Recovered/Resolved]
  - Blood calcium decreased [Recovered/Resolved]
  - Pain [Recovered/Resolved]
  - Balance disorder [Recovered/Resolved]
  - Cognitive disorder [Recovered/Resolved]
  - Depressed level of consciousness [Recovered/Resolved]
  - Fall [Unknown]
  - Orthostatic hypotension [Recovered/Resolved]
  - Sedation complication [Recovered/Resolved]
  - Constipation [Recovered/Resolved]
  - Creatinine renal clearance decreased [Recovered/Resolved]
  - Hypotension [Recovered/Resolved]
  - Mobility decreased [Recovered/Resolved]
